FAERS Safety Report 18734464 (Version 1)
Quarter: 2021Q1

REPORT INFORMATION
  Report Type: Spontaneous
  Country: NL (occurrence: NL)
  Receive Date: 20210113
  Receipt Date: 20210113
  Transmission Date: 20210419
  Serious: Yes (Other)
  Sender: FDA-Public Use
  Company Number: NL-SUN PHARMACEUTICAL INDUSTRIES LTD-2020R1-274897

PATIENT
  Age: 35 Year
  Sex: Female

DRUGS (2)
  1. LEVOCETIRIZINE [Suspect]
     Active Substance: LEVOCETIRIZINE
     Indication: CONJUNCTIVITIS ALLERGIC
     Dosage: 5 MILLIGRAM, BID
     Route: 065
  2. AZELASTINE/FLUTICASONE [Suspect]
     Active Substance: AZELASTINE HYDROCHLORIDE\FLUTICASONE PROPIONATE
     Indication: CONJUNCTIVITIS ALLERGIC
     Dosage: UNK 137/50 MICROG PER ACTUATION
     Route: 065

REACTIONS (1)
  - Acute kidney injury [Unknown]
